FAERS Safety Report 9246481 (Version 3)
Quarter: 2013Q3

REPORT INFORMATION
  Report Type: Spontaneous
  Country: US (occurrence: US)
  Receive Date: 20130422
  Receipt Date: 20130717
  Transmission Date: 20140515
  Serious: Yes (Life-Threatening, Disabling, Other)
  Sender: FDA-Public Use
  Company Number: US-009507513-1304USA010665

PATIENT
  Age: 57 Year
  Sex: Female

DRUGS (1)
  1. EMEND [Suspect]
     Indication: PROPHYLAXIS
     Dosage: 150 MG/20-30 MINUTES IV DRIP
     Route: 042
     Dates: start: 201301, end: 20130402

REACTIONS (3)
  - Oxygen saturation decreased [Recovered/Resolved]
  - Cough [Recovered/Resolved]
  - Dyspnoea [Recovered/Resolved]
